FAERS Safety Report 8598836-9 (Version None)
Quarter: 2012Q3

REPORT INFORMATION
  Report Type: 
  Country: None (occurrence: None)
  Receive Date: 20120816
  Receipt Date: 20120809
  Transmission Date: 20120928
  Serious: Yes (Other)
  Sender: FDA-Public Use
  Company Number: ES-GLAXOSMITHKLINE-B0820480A

PATIENT
  Age: 8 Year
  Sex: Male

DRUGS (1)
  1. FLUTICASONE PROPIONATE/SALMETEROL [Suspect]
     Indication: ASTHMA
     Route: 055

REACTIONS (5)
  - DRY THROAT [None]
  - CHOKING [None]
  - DYSPHONIA [None]
  - PRODUCT QUALITY ISSUE [None]
  - COUGH [None]
